FAERS Safety Report 6741274-1 (Version None)
Quarter: 2010Q2

REPORT INFORMATION
  Report Type: 
  Country: None (occurrence: None)
  Receive Date: 20100526
  Receipt Date: 20100526
  Transmission Date: 20101027
  Serious: Yes (Hospitalization)
  Sender: FDA-Public Use
  Company Number: None

PATIENT
  Age: 10 Month
  Sex: Male
  Weight: 7.7111 kg

DRUGS (2)
  1. CONCENTRATED MOTRIN INFANTS DROPS [Suspect]
     Indication: PYREXIA
     Dosage: 1.25ML Q 6 HRS PO
     Route: 048
     Dates: start: 20100101, end: 20100101
  2. CONCENTRATED MOTRIN INFANTS DROPS [Suspect]
     Indication: PYREXIA
     Dosage: 1.25ML Q 6 HRS PO
     Route: 048
     Dates: start: 20100522, end: 20100525

REACTIONS (2)
  - PRODUCT QUALITY ISSUE [None]
  - SALMONELLOSIS [None]
